FAERS Safety Report 6701415-9 (Version None)
Quarter: 2010Q2

REPORT INFORMATION
  Report Type: 
  Country: None (occurrence: None)
  Receive Date: 20100429
  Receipt Date: 20100415
  Transmission Date: 20101027
  Serious: Yes (Hospitalization)
  Sender: FDA-Public Use
  Company Number: CI-RANBAXY-2010RR-32615

PATIENT
  Age: 33 Year
  Sex: Male
  Weight: 68 kg

DRUGS (12)
  1. ZIDOVUDINE [Suspect]
     Indication: HIV INFECTION
     Dosage: UNK
     Dates: start: 19981001
  2. DIDANOSINE [Suspect]
     Indication: HIV INFECTION
     Dosage: UNK
     Dates: start: 19981001
  3. SAQUINAVIR [Suspect]
     Indication: HIV INFECTION
     Dosage: UNK
     Dates: start: 19981201
  4. STAVUDINE [Suspect]
     Indication: HIV INFECTION
     Dosage: UNK
     Dates: start: 19991001
  5. LAMIVUDINE [Suspect]
     Indication: HIV INFECTION
     Dosage: UNK
     Dates: start: 19991001
  6. LAMIVUDINE [Suspect]
     Dosage: UNK
     Dates: start: 20020101
  7. LAMIVUDINE [Suspect]
     Dosage: UNK
     Dates: start: 20030301
  8. NELFINAVIR MESYLATE [Suspect]
     Indication: HIV INFECTION
     Dosage: UNK
     Dates: start: 19991001
  9. EFAVIRENZ [Suspect]
     Indication: HIV INFECTION
     Dosage: UNK
     Dates: start: 20020101
  10. LOPINAVIR AND RITONAVIR [Suspect]
     Indication: HIV INFECTION
     Dosage: UNK
     Dates: start: 20030301
  11. TENOFOVIR DISOPROXIL FUMARATE [Suspect]
     Indication: HIV INFECTION
     Dosage: UNK
     Dates: start: 20030301
  12. ABACAVIR SULFATE [Suspect]
     Indication: HIV INFECTION

REACTIONS (1)
  - OSTEONECROSIS [None]
